FAERS Safety Report 18359911 (Version 1)
Quarter: 2020Q4

REPORT INFORMATION
  Report Type: Report from Study
  Country: NL (occurrence: NL)
  Receive Date: 20201008
  Receipt Date: 20201008
  Transmission Date: 20210114
  Serious: Yes (Hospitalization, Other)
  Sender: FDA-Public Use
  Company Number: NL-INDICUS PHARMA-000713

PATIENT

DRUGS (1)
  1. METFORMIN [Suspect]
     Active Substance: METFORMIN HYDROCHLORIDE
     Indication: TYPE 2 DIABETES MELLITUS

REACTIONS (5)
  - Renal failure [Unknown]
  - Septic shock [Unknown]
  - Acute hepatic failure [Unknown]
  - Lactic acidosis [Unknown]
  - Toxicity to various agents [Unknown]
